FAERS Safety Report 9965646 (Version 1)
Quarter: 2014Q1

REPORT INFORMATION
  Report Type: Report from Study
  Country: US (occurrence: US)
  Receive Date: 20140305
  Receipt Date: 20140305
  Transmission Date: 20141002
  Serious: No
  Sender: FDA-Public Use
  Company Number: US-ABBVIE-13P-163-1125641-00

PATIENT
  Age: 65 Year
  Sex: Female

DRUGS (6)
  1. HUMIRA [Suspect]
     Indication: CROHN^S DISEASE
     Dates: start: 20130314
  2. ASACOL [Concomitant]
     Indication: PRODUCT USED FOR UNKNOWN INDICATION
     Dosage: 800 MG 4 DAILY
  3. OXAPROZIN [Concomitant]
     Indication: ARTHRITIS
     Dosage: 600 MG 2 DAILY
  4. METFORMIN [Concomitant]
     Indication: DIABETES MELLITUS
     Dosage: 500 MG AT NIGHT
  5. GLIMEPIRIDE [Concomitant]
     Indication: DIABETES MELLITUS
     Dosage: 4 MG DAILY
  6. BENAZEPRIL [Concomitant]
     Indication: HYPERTENSION
     Dosage: 10 MG DAILY

REACTIONS (1)
  - Injection site pain [Recovered/Resolved]
